FAERS Safety Report 7901122-0 (Version None)
Quarter: 2011Q4

REPORT INFORMATION
  Report Type: 
  Country: None (occurrence: None)
  Receive Date: 20111108
  Receipt Date: 20111025
  Transmission Date: 20120403
  Serious: Yes (Hospitalization)
  Sender: FDA-Public Use
  Company Number: US-ELI_LILLY_AND_COMPANY-US201103005660

PATIENT
  Sex: Female
  Weight: 77.098 kg

DRUGS (15)
  1. GABAPENTIN [Concomitant]
  2. SIMVASTATIN [Concomitant]
  3. DILAUDID [Concomitant]
  4. FORTEO [Suspect]
     Dosage: 20 UG, QD
     Route: 058
  5. ATENOLOL [Concomitant]
  6. CALCIUM [Concomitant]
  7. AMLODIPINE [Concomitant]
  8. FUROSEMIDE [Concomitant]
  9. OXYCONTIN [Concomitant]
  10. DIAZEPAM [Concomitant]
  11. ISOSORBIDE MONONITRATE [Concomitant]
  12. PREVACID [Concomitant]
  13. FORTEO [Suspect]
     Dosage: 20 UG, QD
     Route: 058
     Dates: start: 20101003
  14. VITAMIN D [Concomitant]
  15. COUMADIN [Concomitant]

REACTIONS (2)
  - PNEUMONIA [None]
  - URINARY TRACT INFECTION [None]
